FAERS Safety Report 19017802 (Version 1)
Quarter: 2021Q1

REPORT INFORMATION
  Report Type: Report from Study
  Country: GB (occurrence: GB)
  Receive Date: 20210317
  Receipt Date: 20210317
  Transmission Date: 20210420
  Serious: Yes (Other)
  Sender: FDA-Public Use
  Company Number: NVSC2020GB295554

PATIENT
  Sex: Female

DRUGS (1)
  1. HYRIMOZ [Suspect]
     Active Substance: ADALIMUMAB-ADAZ
     Indication: PSORIATIC ARTHROPATHY
     Dosage: 40MG/0.8M, Q2W
     Route: 058
     Dates: start: 20190709

REACTIONS (9)
  - Type 2 diabetes mellitus [Unknown]
  - Psoriasis [Recovering/Resolving]
  - Pharyngitis [Unknown]
  - Post viral fatigue syndrome [Unknown]
  - Gait disturbance [Unknown]
  - Product dose omission issue [Unknown]
  - Pain in extremity [Recovering/Resolving]
  - Illness [Unknown]
  - Balance disorder [Unknown]
